FAERS Safety Report 7139392-1 (Version None)
Quarter: 2010Q4

REPORT INFORMATION
  Report Type: 
  Country: None (occurrence: None)
  Receive Date: 20101206
  Receipt Date: 20101123
  Transmission Date: 20110411
  Serious: Yes (Hospitalization)
  Sender: FDA-Public Use
  Company Number: US-WATSON-2010-15245

PATIENT
  Sex: Male
  Weight: 108.84 kg

DRUGS (2)
  1. FENTANYL-50 [Suspect]
     Indication: BACK PAIN
     Dosage: 1 PATCH, Q 72 HOURS
     Route: 062
     Dates: start: 20101119, end: 20101122
  2. FENTANYL-50 [Suspect]
     Dosage: 1 PATCH, Q 72 HOURS
     Route: 062
     Dates: start: 20020101, end: 20090101

REACTIONS (10)
  - CONDITION AGGRAVATED [None]
  - CONSTIPATION [None]
  - DEPRESSION [None]
  - HYPERHIDROSIS [None]
  - NERVOUSNESS [None]
  - OVERDOSE [None]
  - SKIN BURNING SENSATION [None]
  - SOMNOLENCE [None]
  - TREMOR [None]
  - VOMITING [None]
